FAERS Safety Report 6370180-X (Version None)
Quarter: 2009Q3

REPORT INFORMATION
  Report Type: 
  Country: None (occurrence: None)
  Receive Date: 20090918
  Receipt Date: 20090910
  Transmission Date: 20100115
  Serious: Yes (Hospitalization)
  Sender: FDA-Public Use
  Company Number: 2009SP024696

PATIENT
  Age: 48 Year
  Sex: Male

DRUGS (1)
  1. PROVENTIL-HFA [Suspect]
     Indication: DRUG USE FOR UNKNOWN INDICATION
     Dosage: INH
     Route: 055
     Dates: start: 20090101

REACTIONS (3)
  - CHOLECYSTECTOMY [None]
  - CHOLEDOCHECTOMY [None]
  - UNEVALUABLE EVENT [None]
